FAERS Safety Report 18459446 (Version 1)
Quarter: 2020Q4

REPORT INFORMATION
  Report Type: Spontaneous
  Country: IN (occurrence: IR)
  Receive Date: 20201103
  Receipt Date: 20201103
  Transmission Date: 20210114
  Serious: Yes (Hospitalization, Other)
  Sender: FDA-Public Use
  Company Number: IR-ELI_LILLY_AND_COMPANY-IR202010011643

PATIENT
  Age: 58 Year
  Sex: Female

DRUGS (3)
  1. CHLORPROMAZINE. [Suspect]
     Active Substance: CHLORPROMAZINE
     Indication: BIPOLAR DISORDER
     Dosage: 75 MG, DAILY
     Route: 065
     Dates: start: 2017, end: 201708
  2. OLANZAPINE. [Suspect]
     Active Substance: OLANZAPINE
     Indication: BIPOLAR DISORDER
     Dosage: 30 MG, DAILY
     Route: 065
     Dates: start: 2017, end: 201708
  3. VALPROATE SODIUM. [Concomitant]
     Active Substance: VALPROATE SODIUM
     Indication: MANIA
     Dosage: UNK, UNKNOWN
     Route: 065
     Dates: start: 2020, end: 202008

REACTIONS (2)
  - Deep vein thrombosis [Recovering/Resolving]
  - Lethargy [Unknown]

NARRATIVE: CASE EVENT DATE: 201708
